FAERS Safety Report 10012172 (Version 4)
Quarter: 2020Q3

REPORT INFORMATION
  Report Type: Report from Study
  Country: PL (occurrence: PL)
  Receive Date: 20140314
  Receipt Date: 20141003
  Transmission Date: 20201105
  Serious: Yes (Hospitalization)
  Sender: FDA-Public Use
  Company Number: PHHY2014PL027641

PATIENT
  Age: 56 Year
  Sex: Male

DRUGS (19)
  1. MATRIFEN [Concomitant]
     Active Substance: FENTANYL
     Indication: ABDOMINAL PAIN
     Route: 048
  2. CLEMASTINUM [Concomitant]
     Indication: PREMEDICATION
     Route: 042
  3. ACETYLSALICYLIC ACID [Concomitant]
     Active Substance: ASPIRIN
  4. OXALIPLATIN. [Suspect]
     Active Substance: OXALIPLATIN
     Dosage: 162 MG, IN 2 WEEKS
     Route: 042
     Dates: start: 20140206
  5. 5?FLUOROURACIL [Suspect]
     Active Substance: FLUOROURACIL
     Dosage: 764 MG, IN 2 WEEKS
     Route: 040
     Dates: start: 20140206
  6. DEXAMETHASONE. [Concomitant]
     Active Substance: DEXAMETHASONE
     Indication: PREMEDICATION
     Dosage: 8 MG, DAILY
     Route: 042
     Dates: start: 20140123
  7. OXALIPLATIN. [Suspect]
     Active Substance: OXALIPLATIN
     Indication: GASTROOESOPHAGEAL CANCER
     Dates: start: 20140123
  8. 5?FLUOROURACIL [Suspect]
     Active Substance: FLUOROURACIL
     Route: 042
     Dates: start: 20140123
  9. 5?FLUOROURACIL [Suspect]
     Active Substance: FLUOROURACIL
     Dosage: 4584 MG, UNK
     Route: 041
     Dates: start: 20140206
  10. PANTOPRAZOLUM [Concomitant]
     Indication: DYSPEPSIA
     Route: 048
  11. RANITIDINE. [Concomitant]
     Active Substance: RANITIDINE
     Indication: PREMEDICATION
     Dosage: 50 MG, DAILY
     Route: 042
     Dates: start: 20140123
  12. ONDANSETRON [Concomitant]
     Active Substance: ONDANSETRON
     Indication: PREMEDICATION
     Route: 042
  13. FOLINIC ACID [Suspect]
     Active Substance: LEUCOVORIN
     Dosage: 764 MG, IN 2 WEEKS
     Route: 042
     Dates: start: 20140206
  14. PARACETAMOLUM [Concomitant]
     Indication: PREMEDICATION
     Dosage: 1 G, DAILY
     Route: 042
     Dates: start: 20140123
  15. FOLINIC ACID [Suspect]
     Active Substance: LEUCOVORIN
     Indication: GASTROOESOPHAGEAL CANCER
     Dates: start: 20140123
  16. 5?FLUOROURACIL [Suspect]
     Active Substance: FLUOROURACIL
     Indication: GASTROOESOPHAGEAL CANCER
     Route: 040
     Dates: start: 20140123
  17. ONARTUZUMAB. [Suspect]
     Active Substance: ONARTUZUMAB
     Indication: GASTROOESOPHAGEAL CANCER
     Dates: start: 20140123
  18. PANTOPRAZOLUM [Concomitant]
     Indication: CEREBROVASCULAR ACCIDENT
  19. TRAMAL [Concomitant]
     Active Substance: TRAMADOL
     Indication: PAIN
     Dosage: 50 MG, DAILY
     Route: 048

REACTIONS (2)
  - Monoparesis [Unknown]
  - Cerebrovascular accident [Recovered/Resolved]

NARRATIVE: CASE EVENT DATE: 20140215
